FAERS Safety Report 7801986-5 (Version None)
Quarter: 2011Q4

REPORT INFORMATION
  Report Type: 
  Country: None (occurrence: None)
  Receive Date: 20111007
  Receipt Date: 20110929
  Transmission Date: 20120403
  Serious: No
  Sender: FDA-Public Use
  Company Number: PHHY2010US70270

PATIENT
  Sex: Male

DRUGS (9)
  1. TASIGNA [Suspect]
     Indication: CHRONIC MYELOID LEUKAEMIA
     Dosage: 300 MG, BID
     Route: 048
     Dates: start: 20100909
  2. VERAPAMIL [Concomitant]
     Dosage: 240 MG, DAILY
  3. ATENOLOL [Concomitant]
     Dosage: 50 MG, UNK
  4. ACTOS [Concomitant]
     Dosage: 20 MG, UNK
  5. LIPITOR [Concomitant]
     Dosage: 20 MG, DAILY
  6. TRAZODONE HYDROCHLORIDE [Concomitant]
     Dosage: 200 MG, DAILY
  7. BUPROPION HYDROCHLORIDE [Concomitant]
     Dosage: 150 MG, DAILY
  8. MELOXICAM [Concomitant]
     Dosage: 7.5 MG, DAILY
  9. OXYCODONE HCL [Concomitant]
     Dosage: 5 MG, DAILY

REACTIONS (3)
  - HAIR GROWTH ABNORMAL [None]
  - LIP DISORDER [None]
  - ALOPECIA [None]
